FAERS Safety Report 13471437 (Version 2)
Quarter: 2017Q2

REPORT INFORMATION
  Report Type: Spontaneous
  Country: JP (occurrence: JP)
  Receive Date: 20170424
  Receipt Date: 20170502
  Transmission Date: 20170830
  Serious: Yes (Life-Threatening, Hospitalization, Other)
  Sender: FDA-Public Use
  Company Number: JP-ROCHE-1905595

PATIENT
  Age: 53 Year
  Sex: Female
  Weight: 60 kg

DRUGS (14)
  1. HERCEPTIN [Suspect]
     Active Substance: TRASTUZUMAB
     Indication: BREAST CANCER
  2. THYRADIN-S [Concomitant]
     Active Substance: LEVOTHYROXINE
     Dosage: DIVIDED IN A DOSE, AFTER BREAKFAST
     Route: 048
  3. ROZEREM [Concomitant]
     Active Substance: RAMELTEON
     Route: 048
  4. BAKTAR [Concomitant]
     Active Substance: SULFAMETHOXAZOLE\TRIMETHOPRIM
     Route: 048
  5. PERJETA [Suspect]
     Active Substance: PERTUZUMAB
     Indication: BREAST CANCER
     Dosage: DATE OF MOST RECENT DOSE: 07/JUN/2016?420MG/14ML
     Route: 042
     Dates: start: 20150116
  6. LETROZOLE. [Concomitant]
     Active Substance: LETROZOLE
     Indication: BREAST CANCER
     Route: 065
     Dates: start: 20130701, end: 20160607
  7. FEMARA [Concomitant]
     Active Substance: LETROZOLE
     Indication: BREAST CANCER
     Dosage: FREQUENCY UNCERTAIN,
     Route: 065
     Dates: start: 20130628, end: 20150116
  8. HERCEPTIN [Suspect]
     Active Substance: TRASTUZUMAB
     Indication: BREAST CANCER
     Dosage: DATE OF MOST RECENT DOSE: 07/JUN/2016?FREQUENCY UNCERTAIN.
     Route: 042
     Dates: start: 20150116
  9. EURODIN (JAPAN) [Concomitant]
     Active Substance: ESTAZOLAM
     Route: 048
  10. MAGMITT [Concomitant]
     Active Substance: MAGNESIUM OXIDE
     Route: 048
  11. FEMARA [Concomitant]
     Active Substance: LETROZOLE
     Indication: BREAST CANCER
     Route: 065
     Dates: start: 20150116, end: 20160607
  12. FEMARA [Concomitant]
     Active Substance: LETROZOLE
     Route: 065
     Dates: start: 20130701, end: 20160607
  13. KADCYLA [Suspect]
     Active Substance: ADO-TRASTUZUMAB EMTANSINE
     Indication: BREAST CANCER
     Dosage: DOSAGE IS UNCERTAIN.
     Route: 041
     Dates: start: 20160624, end: 20160916
  14. KADCYLA [Suspect]
     Active Substance: ADO-TRASTUZUMAB EMTANSINE
     Indication: BREAST CANCER
     Route: 041
     Dates: start: 20161014, end: 20161014

REACTIONS (9)
  - Metastases to liver [Unknown]
  - Pneumonia [Recovered/Resolved]
  - Cerebral haemorrhage [Recovered/Resolved with Sequelae]
  - Catheter site pain [Unknown]
  - Seizure [Unknown]
  - Hemiplegia [Unknown]
  - Catheter site pruritus [Unknown]
  - Thrombocytopenia [Recovered/Resolved with Sequelae]
  - Metastases to adrenals [Unknown]

NARRATIVE: CASE EVENT DATE: 20151108
